FAERS Safety Report 10039977 (Version 2)
Quarter: 2014Q2

REPORT INFORMATION
  Report Type: Spontaneous
  Country: US (occurrence: US)
  Receive Date: 20140326
  Receipt Date: 20140421
  Transmission Date: 20141212
  Serious: Yes (Death, Other)
  Sender: FDA-Public Use
  Company Number: US-JNJFOC-20140311969

PATIENT
  Age: 90 Year
  Sex: Male

DRUGS (2)
  1. RISPERDAL [Suspect]
     Indication: RESTLESSNESS
     Route: 048
     Dates: start: 2005, end: 2005
  2. LISINOPRIL [Concomitant]
     Indication: HYPERTENSION
     Route: 065
     Dates: start: 20050928, end: 20060928

REACTIONS (6)
  - Cardiac failure congestive [Fatal]
  - Convulsion [Unknown]
  - Psychomotor hyperactivity [Unknown]
  - Confusional state [Unknown]
  - Disturbance in social behaviour [Unknown]
  - Off label use [Unknown]
